FAERS Safety Report 8226858-6 (Version None)
Quarter: 2012Q1

REPORT INFORMATION
  Report Type: 
  Country: None (occurrence: None)
  Receive Date: 20120322
  Receipt Date: 20120314
  Transmission Date: 20120608
  Serious: Yes (Hospitalization, Other)
  Sender: FDA-Public Use
  Company Number: US-BAYER-2012-026136

PATIENT
  Age: 35 Year
  Sex: Female

DRUGS (3)
  1. LORTAB [Concomitant]
     Indication: PAIN
     Dosage: UNK UNK, PRN
     Route: 048
     Dates: start: 20060301, end: 20060306
  2. IBUPROFEN TABLETS [Concomitant]
     Indication: PAIN
     Dosage: UNK UNK, PRN
     Route: 048
     Dates: start: 20060301, end: 20060306
  3. YASMIN [Suspect]

REACTIONS (2)
  - PULMONARY EMBOLISM [None]
  - CHOLECYSTITIS CHRONIC [None]
